FAERS Safety Report 8806522 (Version 3)
Quarter: 2013Q2

REPORT INFORMATION
  Report Type: Spontaneous
  Country: US (occurrence: US)
  Receive Date: 20120925
  Receipt Date: 20130611
  Transmission Date: 20140414
  Serious: Yes (Hospitalization)
  Sender: FDA-Public Use
  Company Number: US-BAYER-2012-097176

PATIENT
  Age: 14 Year
  Sex: Female
  Weight: 47 kg

DRUGS (4)
  1. YAZ [Suspect]
     Dosage: UNK
     Dates: start: 201201, end: 201202
  2. TORADOL [Concomitant]
  3. TYLENOL WITH CODEINE [Concomitant]
     Indication: CHEST PAIN
     Dosage: EVERY 4-6 HOURS AS NEEDED
  4. MOTRIN [Concomitant]
     Indication: CHEST PAIN
     Dosage: 800 MG, EVERY 6-8 HOURS PRN

REACTIONS (4)
  - Pulmonary embolism [None]
  - Pain [None]
  - Injury [None]
  - Vena cava thrombosis [None]
